FAERS Safety Report 25886001 (Version 1)
Quarter: 2025Q4

REPORT INFORMATION
  Report Type: Spontaneous
  Country: US (occurrence: None)
  Receive Date: 20251006
  Receipt Date: 20251006
  Transmission Date: 20260117
  Serious: Yes (Hospitalization)
  Sender: FDA-CTU
  Company Number: None

PATIENT
  Sex: Male

DRUGS (7)
  1. VYNDAMAX [Suspect]
     Active Substance: TAFAMIDIS
     Dosage: : TAKE 1 CAPSULE BY MOUTH EVERY DAY??
     Route: 048
     Dates: start: 20250912
  2. ELIQUIS [Concomitant]
     Active Substance: APIXABAN
  3. JARDIANCE [Concomitant]
     Active Substance: EMPAGLIFLOZIN
  4. LIPITOR TAB 20MG [Concomitant]
  5. TIKOSYN CAP 125MCG [Concomitant]
  6. TOPROL XL TAB 25MG [Concomitant]
  7. TRESIBA FLEX INJ 2oouNIT [Concomitant]

REACTIONS (3)
  - Urinary tract infection [None]
  - Fluid retention [None]
  - Swelling [None]
